FAERS Safety Report 7495990-7 (Version None)
Quarter: 2011Q2

REPORT INFORMATION
  Report Type: 
  Country: None (occurrence: None)
  Receive Date: 20110523
  Receipt Date: 20110511
  Transmission Date: 20111010
  Serious: Yes (Hospitalization, Other)
  Sender: FDA-Public Use
  Company Number: ES-JNJFOC-20110506391

PATIENT
  Age: 41 Year
  Sex: Male

DRUGS (6)
  1. MYAMBUTOL [Suspect]
     Indication: TUBERCULOSIS
     Route: 048
     Dates: start: 20110322
  2. ISONIAZID W/PYRAZINAMIDE/RIFAMPICIN [Suspect]
     Indication: TUBERCULOSIS
     Route: 048
     Dates: start: 20110322
  3. LEVOFLOXACIN [Suspect]
     Indication: RESPIRATORY TRACT INFECTION
     Route: 048
     Dates: start: 20110314
  4. GANCICLOVIR [Suspect]
     Indication: CANDIDIASIS
     Route: 048
     Dates: start: 20110322
  5. SULFAMETHOXAZOLE AND TRIMETHOPRIM [Suspect]
     Indication: PROPHYLAXIS
     Route: 048
     Dates: start: 20110314
  6. FLUCONAZOLE [Suspect]
     Indication: CANDIDIASIS
     Route: 048
     Dates: start: 20110314

REACTIONS (2)
  - HEPATITIS [None]
  - INCORRECT DOSE ADMINISTERED [None]
